FAERS Safety Report 8576220-1 (Version None)
Quarter: 2012Q2

REPORT INFORMATION
  Report Type: 
  Country: None (occurrence: None)
  Receive Date: 20120423
  Receipt Date: 20100927
  Transmission Date: 20120825
  Serious: Yes (Other)
  Sender: FDA-Public Use
  Company Number: PHHY2010US64267

PATIENT
  Age: 33 Year
  Sex: Female
  Weight: 62 kg

DRUGS (1)
  1. EXJADE [Suspect]
     Indication: SICKLE CELL ANAEMIA
     Dosage: 1250 MG/DAILY, ORAL
     Route: 048
     Dates: start: 20100801

REACTIONS (3)
  - GASTRIC ULCER [None]
  - NAUSEA [None]
  - DIARRHOEA [None]
